FAERS Safety Report 6773964-9 (Version None)
Quarter: 2010Q2

REPORT INFORMATION
  Report Type: 
  Country: None (occurrence: None)
  Receive Date: 20100617
  Receipt Date: 20100608
  Transmission Date: 20101027
  Serious: Yes (Death)
  Sender: FDA-Public Use
  Company Number: US-CELGENEUS-163-21880-10061311

PATIENT

DRUGS (8)
  1. REVLIMID [Suspect]
     Indication: MULTIPLE MYELOMA
     Route: 048
  2. REVLIMID [Suspect]
     Route: 048
  3. VELCADE [Suspect]
     Indication: MULTIPLE MYELOMA
     Route: 065
  4. DEXAMETHASONE [Suspect]
     Indication: MULTIPLE MYELOMA
     Route: 065
  5. CYCLOPHOSPHAMIDE [Suspect]
     Indication: MULTIPLE MYELOMA
     Route: 065
  6. ANTIBIOTICS [Concomitant]
     Indication: PROPHYLAXIS
     Route: 065
  7. ACYCLOVIR [Concomitant]
     Indication: PROPHYLAXIS
     Route: 065
  8. TRANSFUSION [Concomitant]
     Indication: DRUG USE FOR UNKNOWN INDICATION

REACTIONS (12)
  - ANGIOEDEMA [None]
  - AUTONOMIC NEUROPATHY [None]
  - CAECITIS [None]
  - CONSTIPATION [None]
  - FATIGUE [None]
  - FEBRILE NEUTROPENIA [None]
  - HERPES ZOSTER [None]
  - LEUKOPENIA [None]
  - LOBAR PNEUMONIA [None]
  - NAUSEA [None]
  - PANCYTOPENIA [None]
  - RENAL FAILURE [None]
